FAERS Safety Report 12398417 (Version 2)
Quarter: 2016Q2

REPORT INFORMATION
  Report Type: Spontaneous
  Country: FR (occurrence: FR)
  Receive Date: 20160524
  Receipt Date: 20160526
  Transmission Date: 20160815
  Serious: Yes (Hospitalization)
  Sender: FDA-Public Use
  Company Number: FR-PFIZER INC-2016267947

PATIENT
  Age: 13 Year
  Sex: Male

DRUGS (16)
  1. IRINOTECAN HCL [Suspect]
     Active Substance: IRINOTECAN HYDROCHLORIDE
     Indication: GLIOBLASTOMA
     Dosage: 125 MG/M2, OVER 1 HOUR ACCORDING TO THE CYCLE
     Route: 042
     Dates: start: 20160404, end: 20160404
  2. AVASTIN [Suspect]
     Active Substance: BEVACIZUMAB
     Indication: GLIOBLASTOMA
     Dosage: 10 UNK, OVER 1 HOUR ACCORDING TO THE CYCLE
     Route: 042
     Dates: start: 20160222, end: 20160222
  3. ZOPHREN /00955301/ [Concomitant]
     Active Substance: ONDANSETRON
     Indication: PREMEDICATION
     Dosage: 8 MG, UNK
     Dates: start: 20160307, end: 20160307
  4. ZOPHREN /00955301/ [Concomitant]
     Active Substance: ONDANSETRON
     Dosage: 8 MG, UNK
     Dates: start: 20160321, end: 20160321
  5. POLARAMINE [Concomitant]
     Active Substance: DEXCHLORPHENIRAMINE MALEATE
     Dosage: 1 DF, SINGLE
     Route: 042
     Dates: start: 20160502, end: 20160502
  6. AVASTIN [Suspect]
     Active Substance: BEVACIZUMAB
     Dosage: 10 MG/KG, OVER 1 HOUR ACCORDING TO THE CYCLE
     Route: 042
     Dates: start: 20160307, end: 20160307
  7. AVASTIN [Suspect]
     Active Substance: BEVACIZUMAB
     Dosage: 10 MG/KG, OVER 1 HOUR ACCORDING TO THE CYCLE
     Route: 042
     Dates: start: 20160418, end: 20160418
  8. AVASTIN [Suspect]
     Active Substance: BEVACIZUMAB
     Dosage: 10 MG/KG, OVER 1 HOUR ACCORDING TO THE CYCLE
     Route: 042
     Dates: start: 20160502, end: 20160502
  9. IRINOTECAN HCL [Suspect]
     Active Substance: IRINOTECAN HYDROCHLORIDE
     Dosage: 125 MG/M2, OVER 1 HOUR ACCORDING TO THE CYCLE
     Dates: start: 20160502, end: 20160502
  10. AVASTIN [Suspect]
     Active Substance: BEVACIZUMAB
     Dosage: 10 MG/KG, OVER 1 HOUR ACCORDING TO THE CYCLE
     Route: 042
     Dates: start: 20160321, end: 20160321
  11. SOLUPRED /00016201/ [Concomitant]
     Active Substance: PREDNISOLONE
     Indication: PREMEDICATION
     Dosage: 20 MG, UNK
     Dates: start: 20160502, end: 20160502
  12. AVASTIN [Suspect]
     Active Substance: BEVACIZUMAB
     Dosage: 10 MG/KG, OVER 1 HOUR ACCORDING TO THE CYCLE
     Route: 042
     Dates: start: 20160404, end: 20160404
  13. ZOPHREN /00955301/ [Concomitant]
     Active Substance: ONDANSETRON
     Dosage: 8 MG, UNK
     Dates: start: 20160418, end: 20160418
  14. IRINOTECAN HCL [Suspect]
     Active Substance: IRINOTECAN HYDROCHLORIDE
     Dosage: 125 MG/M2, OVER 1 HOUR ACCORDING TO THE CYCLE
     Route: 042
     Dates: start: 20160418, end: 20160418
  15. ZOPHREN /00955301/ [Concomitant]
     Active Substance: ONDANSETRON
     Dosage: 8 MG, UNK
     Dates: start: 20160404, end: 20160404
  16. POLARAMINE [Concomitant]
     Active Substance: DEXCHLORPHENIRAMINE MALEATE
     Indication: PREMEDICATION
     Dosage: 1 DF, SINGLE
     Route: 042
     Dates: start: 20160418, end: 20160418

REACTIONS (4)
  - Vomiting [Unknown]
  - Hypertension [Unknown]
  - Rash [Recovered/Resolved]
  - Chills [Unknown]

NARRATIVE: CASE EVENT DATE: 20160502
